FAERS Safety Report 6826303-9 (Version None)
Quarter: 2010Q3

REPORT INFORMATION
  Report Type: 
  Country: None (occurrence: None)
  Receive Date: 20100709
  Receipt Date: 20100628
  Transmission Date: 20110219
  Serious: Yes (Hospitalization, Other)
  Sender: FDA-Public Use
  Company Number: PHHY2010FR42432

PATIENT
  Sex: Male

DRUGS (1)
  1. VOLTAREN [Suspect]
     Indication: BONE PAIN
     Dosage: 75 MG, BID
     Route: 048
     Dates: start: 20100509, end: 20100519

REACTIONS (3)
  - BONE MARROW FAILURE [None]
  - NEUTROPENIA [None]
  - PYREXIA [None]
